FAERS Safety Report 4308832-5 (Version None)
Quarter: 2004Q1

REPORT INFORMATION
  Report Type: 
  Country: None (occurrence: None)
  Receive Date: 20040227
  Receipt Date: 20040213
  Transmission Date: 20041129
  Serious: Yes (Hospitalization)
  Sender: FDA-Public Use
  Company Number: DSA_24008_2004

PATIENT
  Age: 3 Year
  Sex: Female

DRUGS (2)
  1. ENALAPRIL MALEATE [Suspect]
     Indication: NEPHROTIC SYNDROME
     Dosage: 10 MG Q DAY
  2. PREDNISOLONE [Concomitant]

REACTIONS (9)
  - BLOOD PRESSURE DECREASED [None]
  - BODY HEIGHT BELOW NORMAL [None]
  - CHOLESTASIS [None]
  - HEPATIC FIBROSIS [None]
  - HEPATITIS [None]
  - HEPATOMEGALY [None]
  - HEPATOTOXICITY [None]
  - NEPHROTIC SYNDROME [None]
  - PLATELET COUNT INCREASED [None]
